FAERS Safety Report 8342157-6 (Version None)
Quarter: 2012Q2

REPORT INFORMATION
  Report Type: 
  Country: None (occurrence: None)
  Receive Date: 20120507
  Receipt Date: 20120427
  Transmission Date: 20120825
  Serious: Yes (Hospitalization, Other)
  Sender: FDA-Public Use
  Company Number: CHPA2012US009499

PATIENT
  Age: 66 Year
  Sex: Male

DRUGS (1)
  1. DIPHENHYDRAMINE HCL [Suspect]
     Indication: NASAL CONGESTION
     Dosage: 3 TABLETS, UNK
     Route: 048

REACTIONS (12)
  - CONVULSION [None]
  - MENTAL STATUS CHANGES [None]
  - CONFUSIONAL STATE [None]
  - URINARY RETENTION [None]
  - POLYDIPSIA [None]
  - ANURIA [None]
  - MYALGIA [None]
  - HYPONATRAEMIA [None]
  - OBSTRUCTIVE UROPATHY [None]
  - BLOOD SODIUM DECREASED [None]
  - URINE OSMOLARITY DECREASED [None]
  - BLOOD CREATININE INCREASED [None]
